FAERS Safety Report 4866814-9 (Version None)
Quarter: 2005Q4

REPORT INFORMATION
  Report Type: 
  Country: None (occurrence: None)
  Receive Date: 20051222
  Receipt Date: 20051219
  Transmission Date: 20060501
  Serious: Yes (Other)
  Sender: FDA-Public Use
  Company Number: 2005-0009033

PATIENT
  Sex: Male

DRUGS (3)
  1. TRUVADA [Suspect]
     Dosage: 1 DOSAGE FORMS, 1 IN 1 D, ORAL
     Route: 048
  2. FUZEON [Suspect]
     Dosage: 90 MG 2 IN 1 D SUBCUTANEOUS
     Route: 058
  3. DAPSONE [Concomitant]

REACTIONS (1)
  - TINNITUS [None]
